FAERS Safety Report 25401213 (Version 1)
Quarter: 2025Q2

REPORT INFORMATION
  Report Type: Spontaneous
  Country: US (occurrence: US)
  Receive Date: 20250605
  Receipt Date: 20250605
  Transmission Date: 20250716
  Serious: No
  Sender: ITALFARMACO SPA
  Company Number: US-ITALFARMACO SPA-2178104

PATIENT
  Age: 9 Year
  Sex: Male
  Weight: 29.03 kg

DRUGS (5)
  1. DUVYZAT [Suspect]
     Active Substance: GIVINOSTAT
     Dates: start: 20241004
  2. LISINOPRIL [Concomitant]
     Active Substance: LISINOPRIL
  3. ARTIFICIAL TEARS [PROPYLENE GLYCOL] [Concomitant]
  4. Dorzolamide 2% ophthalmic solution [Concomitant]
  5. PREDNISONE [Concomitant]
     Active Substance: PREDNISONE

REACTIONS (3)
  - Blood triglycerides increased [Unknown]
  - Faeces hard [Unknown]
  - Platelet count decreased [Unknown]
